FAERS Safety Report 8070094-3 (Version None)
Quarter: 2012Q1

REPORT INFORMATION
  Report Type: 
  Country: None (occurrence: None)
  Receive Date: 20120125
  Receipt Date: 20120117
  Transmission Date: 20120608
  Serious: Yes (Other)
  Sender: FDA-Public Use
  Company Number: US-PFIZER INC-2012013846

PATIENT
  Sex: Female
  Weight: 72.562 kg

DRUGS (10)
  1. ZOLOFT [Suspect]
     Indication: ANXIETY
     Dosage: 100 MG, DAILY
  2. CIPROFLOXACIN HYDROCHLORIDE [Concomitant]
     Indication: SINUSITIS
     Dosage: UNK
  3. CIPROFLOXACIN HYDROCHLORIDE [Concomitant]
     Indication: PNEUMONIA
  4. AMBIEN [Concomitant]
     Indication: SLEEP DISORDER
     Dosage: UNK
     Route: 048
  5. LEVAQUIN [Concomitant]
     Indication: PHARYNGITIS STREPTOCOCCAL
  6. ZOLOFT [Suspect]
     Indication: DEPRESSION
  7. LEVAQUIN [Concomitant]
     Indication: PNEUMONIA
  8. LEVAQUIN [Concomitant]
     Indication: SINUSITIS
     Dosage: UNK
  9. CIPROFLOXACIN HYDROCHLORIDE [Concomitant]
     Indication: PHARYNGITIS STREPTOCOCCAL
  10. CORTISONE [Concomitant]
     Indication: BACK DISORDER
     Dosage: UNK, EVERY 3 MONTHS

REACTIONS (1)
  - CANDIDIASIS [None]
